FAERS Safety Report 25929040 (Version 1)
Quarter: 2025Q4

REPORT INFORMATION
  Report Type: Spontaneous
  Country: EU (occurrence: EU)
  Receive Date: 20251016
  Receipt Date: 20251016
  Transmission Date: 20260118
  Serious: Yes (Hospitalization)
  Sender: ASTELLAS
  Company Number: None

PATIENT
  Age: 15 Year
  Sex: Female

DRUGS (3)
  1. AMPHOTERICIN B [Suspect]
     Active Substance: AMPHOTERICIN B
     Indication: Fungal infection
     Dosage: 50 MG, TID
     Route: 042
     Dates: start: 20250927, end: 20250927
  2. OMEPRAZOLE [Concomitant]
     Active Substance: OMEPRAZOLE
     Indication: Prophylaxis
     Dosage: 20 MG
     Route: 042
  3. PIPERACILLIN SODIUM\TAZOBACTAM SODIUM [Concomitant]
     Active Substance: PIPERACILLIN SODIUM\TAZOBACTAM SODIUM
     Indication: Infection
     Dosage: 1 DOSAGE FORM; 4MG/ 0.5 MG
     Route: 042

REACTIONS (1)
  - Laryngospasm [Recovered/Resolved]

NARRATIVE: CASE EVENT DATE: 20250927
